FAERS Safety Report 15505926 (Version 5)
Quarter: 2020Q1

REPORT INFORMATION
  Report Type: Spontaneous
  Country: US (occurrence: US)
  Receive Date: 20181016
  Receipt Date: 20200124
  Transmission Date: 20200409
  Serious: No
  Sender: FDA-Public Use
  Company Number: US-PFIZER INC-2016329128

PATIENT
  Age: 66 Year
  Sex: Female
  Weight: 145.6 kg

DRUGS (14)
  1. HYZAAR [Concomitant]
     Active Substance: HYDROCHLOROTHIAZIDE\LOSARTAN POTASSIUM
     Dosage: UNK UNK, DAILY[HYDROCHLOROTHIAZIDE: 25MG/ LOSARTAN POTASSIUM:100 MG]
     Dates: start: 20160209
  2. TRAMADOL [TRAMADOL HYDROCHLORIDE] [Concomitant]
     Active Substance: TRAMADOL HYDROCHLORIDE
     Indication: PAIN
     Dosage: 50 MG, AS NEEDED(2 TABLETS AT BEDTIME AS NEEDED)
     Route: 048
     Dates: start: 20160208
  3. AMLODIPINE BESYLATE. [Concomitant]
     Active Substance: AMLODIPINE BESYLATE
     Dosage: 10 MG, DAILY
     Route: 048
     Dates: start: 20160209
  4. NOVOLOG [Concomitant]
     Active Substance: INSULIN ASPART
     Dosage: 100 IU/ML, 3X/DAY(SLIDING SCALE COVERAGE)
     Route: 058
     Dates: start: 20140407
  5. SIMVASTATIN. [Concomitant]
     Active Substance: SIMVASTATIN
     Dosage: 40 MG, DAILY
     Route: 048
     Dates: start: 20160209
  6. VITAMIN D3 [Concomitant]
     Active Substance: CHOLECALCIFEROL
     Dosage: 2 DF, DAILY
     Dates: start: 20140407
  7. LYRICA [Suspect]
     Active Substance: PREGABALIN
     Indication: FIBROMYALGIA
     Dosage: 150 MG, 2X/DAY
     Route: 048
     Dates: start: 20160630, end: 20181005
  8. IBUPROFEN. [Concomitant]
     Active Substance: IBUPROFEN
     Dosage: 800 MG, 3X/DAY(W/FOOD)
     Route: 048
     Dates: start: 20160630
  9. ASPIRIN ENTERIC COATED K.P. [Concomitant]
     Active Substance: ASPIRIN
     Dosage: 325 MG, UNK
     Route: 048
  10. INSULIN [Concomitant]
     Active Substance: INSULIN NOS
     Dosage: UNK(5X/DAY)
     Dates: start: 20151019
  11. ULORIC [Concomitant]
     Active Substance: FEBUXOSTAT
     Dosage: 40 MG, DAILY
     Route: 048
     Dates: start: 20140818
  12. LEVEMIR [Concomitant]
     Active Substance: INSULIN DETEMIR
     Dosage: UNK UNK, 2X/DAY(TWICE A DAY 70 U IN AM 80 U IN EVENING)
     Route: 058
     Dates: start: 20140407
  13. METFORMIN [Concomitant]
     Active Substance: METFORMIN HYDROCHLORIDE
     Dosage: UNK[ONE AT NIGHT X 1 WEEK THEN 2 AT NIGHT]
     Dates: start: 20160404
  14. COLCRYS [Concomitant]
     Active Substance: COLCHICINE
     Dosage: 0.6 MG, DAILY
     Dates: start: 20140818

REACTIONS (3)
  - Malaise [Unknown]
  - Confusional state [Unknown]
  - Therapeutic product effect incomplete [Unknown]
